FAERS Safety Report 9507212 (Version 6)
Quarter: 2015Q4

REPORT INFORMATION
  Report Type: Report from Study
  Country: BR (occurrence: BR)
  Receive Date: 20130909
  Receipt Date: 20151021
  Transmission Date: 20160305
  Serious: Yes (Hospitalization, Other)
  Sender: FDA-Public Use
  Company Number: BR-ROCHE-1268906

PATIENT
  Sex: Female
  Weight: 56 kg

DRUGS (6)
  1. TRILAX (BRAZIL) [Concomitant]
     Indication: PAIN
  2. PANTOPRAZOLE [Concomitant]
     Active Substance: PANTOPRAZOLE SODIUM
  3. PREDNISONE. [Concomitant]
     Active Substance: PREDNISONE
     Dosage: CONTINUOUS USE
     Route: 065
  4. ACTEMRA [Suspect]
     Active Substance: TOCILIZUMAB
     Indication: RHEUMATOID ARTHRITIS
     Dosage: LAT DOSE OF ACTEMRA:26/FEB/2014
     Route: 042
     Dates: start: 20120927
  5. TYLEX (BRAZIL) [Concomitant]
     Indication: PAIN
  6. TYLENOL [Concomitant]
     Active Substance: ACETAMINOPHEN
     Indication: PAIN
     Route: 065

REACTIONS (11)
  - Ill-defined disorder [Unknown]
  - Helicobacter infection [Unknown]
  - Pain in extremity [Not Recovered/Not Resolved]
  - Abdominal hernia [Unknown]
  - Inflammation [Not Recovered/Not Resolved]
  - Device breakage [Not Recovered/Not Resolved]
  - Joint dislocation [Not Recovered/Not Resolved]
  - Rheumatoid arthritis [Not Recovered/Not Resolved]
  - Osteoporosis [Unknown]
  - Anaemia [Unknown]
  - Weight decreased [Not Recovered/Not Resolved]

NARRATIVE: CASE EVENT DATE: 2013
